FAERS Safety Report 6710485-3 (Version None)
Quarter: 2010Q2

REPORT INFORMATION
  Report Type: 
  Country: None (occurrence: None)
  Receive Date: 20100430
  Receipt Date: 20100422
  Transmission Date: 20101027
  Serious: Yes (Other)
  Sender: FDA-Public Use
  Company Number: 2010SP013246

PATIENT
  Age: 63 Year
  Sex: Female
  Weight: 57.5 kg

DRUGS (2)
  1. REBETOL [Suspect]
     Indication: HEPATITIS C
     Dosage: PO
     Route: 048
     Dates: start: 20100203
  2. FERON (INTERFERON) [Suspect]
     Indication: HEPATITIS C
     Dosage: IV
     Route: 042
     Dates: start: 20100203

REACTIONS (1)
  - ULCERATIVE KERATITIS [None]
